FAERS Safety Report 9652735 (Version 1)
Quarter: 2013Q4

REPORT INFORMATION
  Report Type: Spontaneous
  Country: CA (occurrence: CA)
  Receive Date: 20131029
  Receipt Date: 20131029
  Transmission Date: 20140711
  Serious: Yes (Other)
  Sender: FDA-Public Use
  Company Number: CA-ROCHE-1294141

PATIENT
  Sex: Female

DRUGS (4)
  1. ROCALTROL [Suspect]
     Indication: HYPOCALCAEMIA
     Dosage: FREQUENCY: 2 X 3 PER WEEK
     Route: 048
     Dates: start: 2010, end: 201203
  2. ROCALTROL [Suspect]
     Dosage: FREQUENCY: 1 X 3 PER WEEK
     Route: 048
     Dates: start: 201203, end: 20130425
  3. ROCALTROL [Suspect]
     Dosage: FREQUENCY: 2 X 3 PER WEEK
     Route: 048
     Dates: start: 20130425, end: 20130506
  4. ROCALTROL [Suspect]
     Dosage: FREQUENCY: 3 X 3 PER WEEK
     Route: 065
     Dates: start: 20130506

REACTIONS (3)
  - Blood calcium decreased [Unknown]
  - Blood parathyroid hormone increased [Unknown]
  - Medication residue present [Not Recovered/Not Resolved]
